FAERS Safety Report 18087304 (Version 2)
Quarter: 2020Q3

REPORT INFORMATION
  Report Type: Spontaneous
  Country: IT (occurrence: IT)
  Receive Date: 20200729
  Receipt Date: 20200928
  Transmission Date: 20201103
  Serious: Yes (Disabling)
  Sender: FDA-Public Use
  Company Number: IT-009507513-2007ITA010752

PATIENT
  Age: 27 Year
  Sex: Male
  Weight: 75 kg

DRUGS (1)
  1. PROSCAR [Suspect]
     Active Substance: FINASTERIDE
     Indication: ANDROGENETIC ALOPECIA
     Dosage: 1.25 MILLIGRAM (MG), QD
     Route: 048
     Dates: start: 200607, end: 200812

REACTIONS (5)
  - Drug effective for unapproved indication [Unknown]
  - Product use in unapproved indication [Unknown]
  - Post 5-alpha-reductase inhibitor syndrome [Recovering/Resolving]
  - Incorrect dose administered [Unknown]
  - Product prescribing issue [Unknown]

NARRATIVE: CASE EVENT DATE: 200607
